FAERS Safety Report 4523774-8 (Version None)
Quarter: 2004Q4

REPORT INFORMATION
  Report Type: 
  Country: None (occurrence: None)
  Receive Date: 20041101
  Receipt Date: 20040818
  Transmission Date: 20050328
  Serious: Yes (Other)
  Sender: FDA-Public Use
  Company Number: HQWYE56020AUG04

PATIENT
  Sex: Female

DRUGS (3)
  1. PREMARIN [Suspect]
     Dosage: 0.625 MG DAILY, ORAL
     Route: 048
  2. PREMPRO [Suspect]
     Dosage: 0.625 MG/UNSPECIFIE DAILY, ORAL
     Route: 048
  3. PROVERA [Suspect]
     Dosage: ORAL
     Route: 048

REACTIONS (3)
  - CEREBROVASCULAR ACCIDENT [None]
  - DEPRESSION [None]
  - PAIN IN EXTREMITY [None]
